FAERS Safety Report 22653350 (Version 1)
Quarter: 2023Q2

REPORT INFORMATION
  Report Type: Spontaneous
  Country: BR (occurrence: BR)
  Receive Date: 20230629
  Receipt Date: 20230629
  Transmission Date: 20230721
  Serious: Yes (Other)
  Sender: FDA-Public Use
  Company Number: BR-AMGEN-BRASP2019116035

PATIENT
  Age: 63 Year
  Sex: Female

DRUGS (2)
  1. PANITUMUMAB [Suspect]
     Active Substance: PANITUMUMAB
     Indication: Colorectal cancer metastatic
     Dosage: 300 MILLIGRAM, Q2WK
     Route: 065
  2. IRINOTECAN [Concomitant]
     Active Substance: IRINOTECAN
     Indication: Colorectal cancer metastatic
     Dosage: UNK, Q2WK
     Route: 065

REACTIONS (12)
  - Anaemia [Unknown]
  - Neutropenia [Unknown]
  - Neuropathy peripheral [Unknown]
  - Stomatitis [Recovered/Resolved]
  - Dermatitis acneiform [Recovered/Resolved]
  - Nausea [Unknown]
  - Vomiting [Unknown]
  - Diarrhoea [Unknown]
  - Dry skin [Unknown]
  - Alopecia [Unknown]
  - Hypomagnesaemia [Unknown]
  - Fatigue [Unknown]
